FAERS Safety Report 9248490 (Version 1)
Quarter: 2013Q2

REPORT INFORMATION
  Report Type: Spontaneous
  Country: US (occurrence: US)
  Receive Date: 20130423
  Receipt Date: 20130423
  Transmission Date: 20140414
  Serious: No
  Sender: FDA-Public Use
  Company Number: US-TEVA-400033USA

PATIENT
  Sex: Female
  Weight: 110.78 kg

DRUGS (6)
  1. PROAIR HFA [Suspect]
     Indication: ASTHMA
     Dates: start: 2012
  2. NITROSTAT [Concomitant]
     Indication: CARDIAC DISORDER
  3. FLEXERIL [Concomitant]
     Indication: MUSCLE SPASMS
  4. BUTORPHANOL [Concomitant]
     Indication: MIGRAINE
  5. NEBUZINE [Concomitant]
     Indication: ARTHRALGIA
  6. ASPIRIN [Concomitant]
     Indication: CARDIAC DISORDER

REACTIONS (1)
  - Dyspnoea [Not Recovered/Not Resolved]
